FAERS Safety Report 6440997-1 (Version None)
Quarter: 2009Q4

REPORT INFORMATION
  Report Type: 
  Country: None (occurrence: None)
  Receive Date: 20091116
  Receipt Date: 20091103
  Transmission Date: 20100525
  Serious: Yes (Other)
  Sender: FDA-Public Use
  Company Number: US-ROCHE-656273

PATIENT
  Sex: Male
  Weight: 3.7 kg

DRUGS (4)
  1. TAMIFLU [Suspect]
     Indication: H1N1 INFLUENZA
     Dates: start: 20090827, end: 20090830
  2. FLINSTONES CHILDREN'S CHEWABLE VITAMINS [Concomitant]
     Dosage: DOSE: 2 CHEWABLES DAILY; DRUG: FLINTSTONE VITAMIN; OTHER INDICATION: PREGNANCY
  3. CLINDESSE [Concomitant]
     Indication: VAGINAL INFECTION
     Dosage: FREQUENCY DAILY
     Dates: start: 20090326, end: 20090330
  4. TERAZOL 3 [Concomitant]
     Dosage: FREQUENCY DAILY
     Dates: start: 20090721, end: 20090723

REACTIONS (2)
  - DRUG EXPOSURE DURING PREGNANCY [None]
  - INTRA-UTERINE DEATH [None]
